FAERS Safety Report 10456880 (Version 5)
Quarter: 2014Q4

REPORT INFORMATION
  Report Type: Report from Study
  Country: CL (occurrence: CL)
  Receive Date: 20140916
  Receipt Date: 20141104
  Transmission Date: 20150528
  Serious: Yes (Death, Hospitalization, Other)
  Sender: FDA-Public Use
  Company Number: PHHY2014CL119132

PATIENT
  Sex: Female

DRUGS (10)
  1. METHOREX [Concomitant]
     Indication: ACUTE LYMPHOCYTIC LEUKAEMIA
     Dosage: CHEMO R1 AND R2
     Route: 042
     Dates: start: 201403, end: 201409
  2. ASPARAGINASE [Concomitant]
     Active Substance: ASPARAGINASE
     Indication: ACUTE LYMPHOCYTIC LEUKAEMIA
     Dosage: CHEMO R1 AND R2
     Route: 065
     Dates: start: 201403, end: 201409
  3. GLIVEC [Suspect]
     Active Substance: IMATINIB MESYLATE
     Dosage: 400 MG
     Route: 065
     Dates: start: 201403
  4. IFOXAN [Concomitant]
     Indication: ACUTE LYMPHOCYTIC LEUKAEMIA
     Dosage: UNK UKN, UNK
     Route: 065
     Dates: start: 201403, end: 201409
  5. GLIVEC [Suspect]
     Active Substance: IMATINIB MESYLATE
     Indication: ACUTE LYMPHOCYTIC LEUKAEMIA
     Dosage: 600 MG
     Route: 065
  6. DEXAMETASON [Concomitant]
     Active Substance: DEXAMETHASONE
     Indication: ACUTE LYMPHOCYTIC LEUKAEMIA
     Dosage: CHEMO R1 AND R2
     Route: 048
     Dates: start: 201403, end: 201409
  7. DAUNORUBICIN [Concomitant]
     Active Substance: DAUNORUBICIN
     Indication: ACUTE LYMPHOCYTIC LEUKAEMIA
     Dosage: CHEMO R1 AND R2
     Route: 042
     Dates: start: 201403, end: 201409
  8. ARA-C [Concomitant]
     Active Substance: CYTARABINE
     Indication: ACUTE LYMPHOCYTIC LEUKAEMIA
     Dosage: UNK UKN, UNK
     Route: 065
     Dates: start: 201403, end: 201409
  9. VINCRISTINE [Concomitant]
     Active Substance: VINCRISTINE
     Indication: ACUTE LYMPHOCYTIC LEUKAEMIA
     Dosage: UNK UKN, UNK
     Route: 065
     Dates: start: 201403, end: 201409
  10. THIOGUANINE [Concomitant]
     Active Substance: THIOGUANINE
     Indication: ACUTE LYMPHOCYTIC LEUKAEMIA
     Dosage: CHEMO R1 AND R2
     Route: 048
     Dates: start: 201403, end: 201409

REACTIONS (10)
  - Urinary tract infection [Unknown]
  - Pancytopenia [Unknown]
  - Systemic candida [Unknown]
  - Perineal abscess [Unknown]
  - Acute kidney injury [Fatal]
  - Renal disorder [Unknown]
  - Perinephric collection [Unknown]
  - Infection [Unknown]
  - Intestinal fistula [Unknown]
  - Sepsis [Unknown]
